FAERS Safety Report 14960805 (Version 1)
Quarter: 2018Q2

REPORT INFORMATION
  Report Type: Report from Study
  Country: US (occurrence: US)
  Receive Date: 20180531
  Receipt Date: 20180531
  Transmission Date: 20180711
  Serious: No
  Sender: FDA-Public Use
  Company Number: US-AMGEN-USASL2017190712

PATIENT
  Age: 64 Year
  Sex: Female

DRUGS (1)
  1. REPATHA [Suspect]
     Active Substance: EVOLOCUMAB
     Indication: TYPE IIA HYPERLIPIDAEMIA
     Dosage: 140 MG, Q2WK
     Route: 065

REACTIONS (7)
  - Bone loss [Unknown]
  - Abdominal pain upper [Unknown]
  - Sneezing [Recovered/Resolved]
  - Dyspepsia [Unknown]
  - Arthralgia [Unknown]
  - Blood glucose abnormal [Unknown]
  - Cough [Recovered/Resolved]
